FAERS Safety Report 8061970-6 (Version None)
Quarter: 2012Q1

REPORT INFORMATION
  Report Type: 
  Country: None (occurrence: None)
  Receive Date: 20120123
  Receipt Date: 20120112
  Transmission Date: 20120608
  Serious: Yes (Hospitalization)
  Sender: FDA-Public Use
  Company Number: US-CELGENEUS-163-21880-12010285

PATIENT
  Sex: Male

DRUGS (1)
  1. REVLIMID [Suspect]
     Indication: MULTIPLE MYELOMA
     Dosage: 5 MILLIGRAM
     Route: 048
     Dates: start: 20111220, end: 20120110

REACTIONS (4)
  - PYREXIA [None]
  - ASTHENIA [None]
  - INTERNATIONAL NORMALISED RATIO INCREASED [None]
  - FULL BLOOD COUNT DECREASED [None]
